FAERS Safety Report 9907196 (Version 4)
Quarter: 2014Q2

REPORT INFORMATION
  Report Type: Spontaneous
  Country: GB (occurrence: GB)
  Receive Date: 20140218
  Receipt Date: 20140401
  Transmission Date: 20141212
  Serious: Yes (Hospitalization, Other)
  Sender: FDA-Public Use
  Company Number: GB-PFIZER INC-2014042569

PATIENT
  Age: 55 Year
  Sex: Male

DRUGS (3)
  1. BOSULIF [Suspect]
     Indication: CHRONIC MYELOID LEUKAEMIA
     Dosage: 300 MG, DAILY
     Route: 048
     Dates: start: 201307
  2. ASPIRIN [Concomitant]
     Dosage: UNK
  3. CLOPIDOGREL SULFATE [Concomitant]
     Dosage: UNK

REACTIONS (4)
  - Troponin increased [Recovered/Resolved]
  - Acute myocardial infarction [Recovered/Resolved]
  - Coronary artery stenosis [Unknown]
  - Abdominal discomfort [Recovered/Resolved]
